FAERS Safety Report 4456299-9 (Version None)
Quarter: 2004Q3

REPORT INFORMATION
  Report Type: 
  Country: None (occurrence: None)
  Receive Date: 20040917
  Receipt Date: 20040901
  Transmission Date: 20050211
  Serious: Yes (Death, Hospitalization, Other)
  Sender: FDA-Public Use
  Company Number: US_0408105109

PATIENT
  Age: 80 Year
  Sex: Female

DRUGS (5)
  1. FORTEO [Suspect]
     Indication: OSTEOPOROSIS
     Dates: start: 20030520
  2. DEPO-MEDROL [Concomitant]
  3. METHOTREXATE [Concomitant]
  4. PAIN MEDICINE [Concomitant]
  5. PREDNISONE [Concomitant]

REACTIONS (15)
  - ABASIA [None]
  - BLOOD ALKALINE PHOSPHATASE INCREASED [None]
  - CARDIOMYOPATHY [None]
  - DYSPNOEA [None]
  - EJECTION FRACTION DECREASED [None]
  - HYPERPARATHYROIDISM [None]
  - HYPERTHYROIDISM [None]
  - MUSCLE DISORDER [None]
  - MUSCULAR WEAKNESS [None]
  - OEDEMA PERIPHERAL [None]
  - PAIN [None]
  - PITTING OEDEMA [None]
  - POLYMYOSITIS [None]
  - SPINAL CORD INJURY [None]
  - WHEELCHAIR USER [None]
